FAERS Safety Report 20795754 (Version 17)
Quarter: 2025Q1

REPORT INFORMATION
  Report Type: Spontaneous
  Country: US (occurrence: US)
  Receive Date: 20220506
  Receipt Date: 20250116
  Transmission Date: 20250409
  Serious: No
  Sender: PFIZER
  Company Number: US-PFIZER INC-202200578719

PATIENT
  Age: 73 Year
  Sex: Female
  Weight: 56.7 kg

DRUGS (20)
  1. IBRANCE [Suspect]
     Active Substance: PALBOCICLIB
     Indication: Breast cancer metastatic
     Route: 048
     Dates: start: 20220325, end: 20220415
  2. IBRANCE [Suspect]
     Active Substance: PALBOCICLIB
     Dates: start: 202204
  3. IBRANCE [Suspect]
     Active Substance: PALBOCICLIB
     Route: 048
     Dates: start: 20220504, end: 20220926
  4. IBRANCE [Suspect]
     Active Substance: PALBOCICLIB
     Route: 048
     Dates: start: 20221024
  5. IBRANCE [Suspect]
     Active Substance: PALBOCICLIB
     Route: 048
  6. IBRANCE [Suspect]
     Active Substance: PALBOCICLIB
     Route: 048
     Dates: start: 20250106
  7. FASLODEX [Concomitant]
     Active Substance: FULVESTRANT
     Indication: Oestrogen therapy
     Dates: start: 20220602
  8. FASLODEX [Concomitant]
     Active Substance: FULVESTRANT
     Dosage: MONTHLY, 2 SHOTS EVERY 4 WEEKS/EVERY 28 DAYS
  9. FASLODEX [Concomitant]
     Active Substance: FULVESTRANT
     Route: 030
  10. ZOMETA [Concomitant]
     Active Substance: ZOLEDRONIC ACID
     Indication: Bone density decreased
     Dosage: UNK, INFUSION ONCE EVERY 3 MONTHS
  11. ZOMETA [Concomitant]
     Active Substance: ZOLEDRONIC ACID
  12. ZOMETA [Concomitant]
     Active Substance: ZOLEDRONIC ACID
  13. METOPROLOL [Concomitant]
     Active Substance: METOPROLOL
     Indication: Hypertension
  14. RAMIPRIL [Concomitant]
     Active Substance: RAMIPRIL
     Indication: Hypertension
  15. ISOSORBIDE MONONITRATE [Concomitant]
     Active Substance: ISOSORBIDE MONONITRATE
     Indication: Angina pectoris
  16. ISOSORBIDE MONONITRATE [Concomitant]
     Active Substance: ISOSORBIDE MONONITRATE
     Indication: Chest pain
  17. ROSUVASTATIN [Concomitant]
     Active Substance: ROSUVASTATIN
     Indication: Blood cholesterol abnormal
  18. ASPIRIN [Concomitant]
     Active Substance: ASPIRIN
     Indication: Cardiac disorder
  19. EXEMESTANE [Concomitant]
     Active Substance: EXEMESTANE
     Dates: end: 20220602
  20. XANAX [Concomitant]
     Active Substance: ALPRAZOLAM
     Route: 048

REACTIONS (24)
  - Headache [Unknown]
  - Stress [Unknown]
  - Weight fluctuation [Unknown]
  - Brain fog [Unknown]
  - Abdominal pain upper [Unknown]
  - Somnolence [Unknown]
  - Platelet count decreased [Unknown]
  - Full blood count decreased [Unknown]
  - Alopecia [Unknown]
  - Oral herpes [Unknown]
  - White blood cell count decreased [Unknown]
  - Nausea [Unknown]
  - Asthenia [Unknown]
  - Fatigue [Unknown]
  - Intercepted product prescribing error [Unknown]
  - Blood creatinine increased [Unknown]
  - Neoplasm progression [Unknown]
  - Glomerular filtration rate decreased [Unknown]
  - Red blood cell count decreased [Unknown]
  - Mean cell volume increased [Unknown]
  - Mean cell haemoglobin increased [Unknown]
  - Red cell distribution width increased [Unknown]
  - Nipple oedema [Unknown]
  - Neutrophil count decreased [Unknown]

NARRATIVE: CASE EVENT DATE: 20241112
